FAERS Safety Report 12208370 (Version 1)
Quarter: 2016Q1

REPORT INFORMATION
  Report Type: Report from Study
  Country: BR (occurrence: BR)
  Receive Date: 20160324
  Receipt Date: 20160324
  Transmission Date: 20160526
  Serious: Yes (Other)
  Sender: FDA-Public Use
  Company Number: PHHY2016BR037600

PATIENT
  Sex: Female
  Weight: 62 kg

DRUGS (3)
  1. NILOTINIB [Suspect]
     Active Substance: NILOTINIB
     Indication: CHRONIC MYELOID LEUKAEMIA
     Dosage: 200 MG, BID (2 TABLETS IN THE MORNING AND 2 TABLETS AT NIGHT)
     Route: 048
     Dates: start: 2014
  2. DASATINIB [Suspect]
     Active Substance: DASATINIB
     Indication: CHRONIC MYELOID LEUKAEMIA
     Dosage: UNK
     Route: 065
  3. GLIVEC [Suspect]
     Active Substance: IMATINIB MESYLATE
     Indication: CHRONIC MYELOID LEUKAEMIA
     Dosage: 800 MG, BID
     Route: 048
     Dates: start: 2007

REACTIONS (21)
  - Chronic myeloid leukaemia recurrent [Unknown]
  - Xanthelasma [Not Recovered/Not Resolved]
  - Chromaturia [Unknown]
  - Rash [Unknown]
  - Rash macular [Recovered/Resolved]
  - Erythema [Unknown]
  - Vision blurred [Not Recovered/Not Resolved]
  - Muscular weakness [Recovered/Resolved]
  - Muscular weakness [Unknown]
  - Dyspnoea [Unknown]
  - Fatigue [Unknown]
  - Respiratory fatigue [Unknown]
  - Quality of life decreased [Unknown]
  - Blood pressure increased [Unknown]
  - Insomnia [Recovering/Resolving]
  - Liver disorder [Unknown]
  - Blood pressure fluctuation [Unknown]
  - Blood cholesterol increased [Recovered/Resolved]
  - Urine odour abnormal [Unknown]
  - Skin discolouration [Unknown]
  - Rash macular [Unknown]
